FAERS Safety Report 8270516-9 (Version None)
Quarter: 2012Q2

REPORT INFORMATION
  Report Type: 
  Country: None (occurrence: None)
  Receive Date: 20120410
  Receipt Date: 20120402
  Transmission Date: 20120825
  Serious: Yes (Other)
  Sender: FDA-Public Use
  Company Number: US-ASTELLAS-2012US003338

PATIENT
  Age: 93 Year
  Sex: Female

DRUGS (3)
  1. VESICARE [Suspect]
     Dosage: 10 MG, UID/QD
     Route: 048
  2. VESICARE [Suspect]
     Indication: PRODUCT USED FOR UNKNOWN INDICATION
     Dosage: 5 MG, UID/QD
     Route: 048
     Dates: start: 20110101
  3. VESICARE [Suspect]
     Dosage: 5 MG, UNKNOWN/D
     Route: 048

REACTIONS (5)
  - ANGLE CLOSURE GLAUCOMA [None]
  - CATARACT [None]
  - HEADACHE [None]
  - BLINDNESS [None]
  - OCULAR HYPERAEMIA [None]
